FAERS Safety Report 19416586 (Version 1)
Quarter: 2021Q2

REPORT INFORMATION
  Report Type: Spontaneous
  Country: US (occurrence: US)
  Receive Date: 20210613
  Receipt Date: 20210613
  Transmission Date: 20210717
  Serious: No
  Sender: FDA-Public Use
  Company Number: None

PATIENT
  Age: 39 Year
  Sex: Male
  Weight: 157.5 kg

DRUGS (8)
  1. GRAPE SEED EXTRACT [Concomitant]
     Active Substance: DIETARY SUPPLEMENT\GRAPE SEED EXTRACT
  2. AZOR [Concomitant]
     Active Substance: AMLODIPINE BESYLATE\OLMESARTAN MEDOXOMIL
  3. NAD+ (NICOTINAMIDE ADENINE DINUCLEOTIDE) INFUSION [Suspect]
     Active Substance: NADH
     Indication: DRUG THERAPY
     Route: 042
     Dates: start: 20210531, end: 20210531
  4. VITAMIN D3 [Concomitant]
     Active Substance: CHOLECALCIFEROL
  5. LIDOCAINE 12 HOUR PATCHES [Concomitant]
  6. DICLOFENIC [Concomitant]
  7. VITAMIN B12 [Concomitant]
     Active Substance: CYANOCOBALAMIN
  8. MEAL POWDER DRINKS [Concomitant]

REACTIONS (3)
  - Blood urine present [None]
  - Diarrhoea haemorrhagic [None]
  - Nausea [None]

NARRATIVE: CASE EVENT DATE: 20210612
